FAERS Safety Report 7671260-9 (Version None)
Quarter: 2011Q3

REPORT INFORMATION
  Report Type: 
  Country: None (occurrence: None)
  Receive Date: 20110803
  Receipt Date: 20110720
  Transmission Date: 20111222
  Serious: Yes (Hospitalization)
  Sender: FDA-Public Use
  Company Number: 1000022013

PATIENT
  Age: 50 Year
  Sex: Female
  Weight: 72 kg

DRUGS (12)
  1. COMBIVENT (SALBUTAMOL, IPRATROPIUM) (SALBUTAMOL, IPRATROPIUM) [Concomitant]
  2. AERIUS (DESLORATADINE) (5 MILLIGRAM, TABLETS) (DESLORATADINE) [Concomitant]
  3. PANTOPRAZOLE (PANTOPRAZOLE) (40 MILLIGRAM, TABLETS) (PANTOPRAZOLE) [Concomitant]
  4. CRESTOR (ROSUVASTATIN) (20 MILLIGRAM, TABLETS) (ROSUVASTATNI) [Concomitant]
  5. AZITHROMYCIN (AZITHROMYCIN) (250 MILLIGRAM, TABLETS) (AZITHROMYCIN) [Concomitant]
  6. ATROVENT (IPRATROPIUM BROMIDE) (IPRATROPIUM BROMIDE) [Concomitant]
  7. ASCAL (ACETYLSALICYLATE CALCIUM) (100 MILLIGRAM) (ACETYLSALICYLATE CAL [Concomitant]
  8. TIOTROPIUM (TIOTROPIUM) (TIOTROPIUM) [Concomitant]
  9. ROFLUMILAST (ROFLUMILAST) (500 MICROGRAM, TABLETS) [Suspect]
     Indication: CHRONIC OBSTRUCTIVE PULMONARY DISEASE
     Dosage: 500 MCG (500 MCG,1 IN 1 D),ORAL
     Route: 048
     Dates: start: 20110421, end: 20110706
  10. VENTOLINE (SALBUTAMOL) (SALBUTAMOL) [Concomitant]
  11. PREDNISOLONE [Concomitant]
  12. FLIXOTIDE (FLUTICASONE) (FLUTICASONE) [Concomitant]

REACTIONS (11)
  - MYALGIA [None]
  - NODULE [None]
  - PHARYNGEAL OEDEMA [None]
  - DYSPNOEA [None]
  - INSOMNIA [None]
  - DYSPHAGIA [None]
  - TONGUE DISORDER [None]
  - PHARYNGEAL DISORDER [None]
  - DEPRESSION [None]
  - MUSCLE SPASMS [None]
  - HYPERHIDROSIS [None]
